FAERS Safety Report 6602882-1 (Version None)
Quarter: 2010Q1

REPORT INFORMATION
  Report Type: 
  Country: None (occurrence: None)
  Receive Date: 20100226
  Receipt Date: 20100211
  Transmission Date: 20100710
  Serious: Yes (Other)
  Sender: FDA-Public Use
  Company Number: US-ELI_LILLY_AND_COMPANY-US201002004338

PATIENT
  Age: 51 Year
  Sex: Male

DRUGS (3)
  1. EFFIENT [Suspect]
     Indication: PERCUTANEOUS CORONARY INTERVENTION
     Dosage: 60 MG, UNK
     Dates: start: 20100206
  2. ANGIOMAX [Concomitant]
     Indication: PERCUTANEOUS CORONARY INTERVENTION
     Route: 042
     Dates: start: 20100206, end: 20100206
  3. ASPIRIN [Concomitant]
     Indication: ACUTE CORONARY SYNDROME

REACTIONS (1)
  - THROMBOSIS IN DEVICE [None]
